FAERS Safety Report 25092798 (Version 1)
Quarter: 2025Q1

REPORT INFORMATION
  Report Type: Spontaneous
  Country: US (occurrence: US)
  Receive Date: 20250319
  Receipt Date: 20250319
  Transmission Date: 20250408
  Serious: No
  Sender: BOEHRINGER INGELHEIM
  Company Number: US-BoehringerIngelheim-2025-BI-015816

PATIENT
  Age: 52 Year
  Sex: Female

DRUGS (8)
  1. JARDIANCE [Suspect]
     Active Substance: EMPAGLIFLOZIN
     Indication: Product used for unknown indication
  2. ZEPBOUND [Suspect]
     Active Substance: TIRZEPATIDE
     Indication: Obstructive sleep apnoea syndrome
  3. ZEPBOUND [Suspect]
     Active Substance: TIRZEPATIDE
     Indication: Weight decreased
  4. ZEPBOUND [Suspect]
     Active Substance: TIRZEPATIDE
  5. ZEPBOUND [Suspect]
     Active Substance: TIRZEPATIDE
  6. TIRZEPATIDE [Suspect]
     Active Substance: TIRZEPATIDE
     Indication: Product used for unknown indication
  7. IRON [Suspect]
     Active Substance: IRON
     Indication: Anaemia
  8. VITAMIN B12 [Suspect]
     Active Substance: CYANOCOBALAMIN
     Indication: Anaemia

REACTIONS (5)
  - Dizziness [Unknown]
  - Blood pressure increased [Unknown]
  - Anaemia [Unknown]
  - Fatigue [Unknown]
  - Weight increased [Unknown]
